FAERS Safety Report 7817348-0 (Version None)
Quarter: 2011Q4

REPORT INFORMATION
  Report Type: 
  Country: None (occurrence: None)
  Receive Date: 20111017
  Receipt Date: 20111004
  Transmission Date: 20120403
  Serious: Yes (Hospitalization, Other)
  Sender: FDA-Public Use
  Company Number: US-ELI_LILLY_AND_COMPANY-US201110001761

PATIENT
  Sex: Female

DRUGS (8)
  1. COMBIVENT [Concomitant]
  2. METOPROLOL TARTRATE [Concomitant]
  3. MIRTAZAPINE [Concomitant]
  4. SULFAMETHOXAZOLE AND TRIMETHOPRIM DOUBLE STRENGTH [Concomitant]
  5. CRESTOR [Concomitant]
  6. FORTEO [Suspect]
     Indication: OSTEOPOROSIS
     Dosage: 20 UG, QD
     Dates: start: 20110101
  7. SPIRIVA [Concomitant]
  8. LORAZEPAM [Concomitant]

REACTIONS (4)
  - RESPIRATORY DISTRESS [None]
  - CARDIAC ENZYMES INCREASED [None]
  - OXYGEN SATURATION DECREASED [None]
  - ARTERIOSCLEROSIS [None]
